FAERS Safety Report 4556538-X (Version None)
Quarter: 2005Q1

REPORT INFORMATION
  Report Type: 
  Country: None (occurrence: None)
  Receive Date: 20050118
  Receipt Date: 20050111
  Transmission Date: 20050727
  Serious: Yes (Hospitalization)
  Sender: FDA-Public Use
  Company Number: MYVW-PR-0501S-0001

PATIENT
  Age: 58 Year
  Sex: Female

DRUGS (4)
  1. MYOVIEW [Suspect]
     Dosage: 1110 MBQ, SINGLE DOSE
     Dates: start: 20041208, end: 20041208
  2. THALLOUS CHLORIDE TL 201 [Suspect]
     Dosage: 129.5 MBQ, SINGLE DOSE
     Dates: start: 20041208, end: 20041208
  3. UNSPECIFIED ACE INHIBITOR [Concomitant]
  4. TECHNETIUM TC 99M GENERATOR [Concomitant]

REACTIONS (3)
  - DYSARTHRIA [None]
  - SWOLLEN TONGUE [None]
  - TONGUE DISORDER [None]
